FAERS Safety Report 5669158-0 (Version None)
Quarter: 2008Q1

REPORT INFORMATION
  Report Type: 
  Country: None (occurrence: None)
  Receive Date: 20080311
  Receipt Date: 20080311
  Transmission Date: 20080703
  Serious: Yes (Hospitalization)
  Sender: FDA-Public Use
  Company Number: None

PATIENT
  Sex: Female

DRUGS (2)
  1. ABRAXANE [Suspect]
     Dates: start: 20080129, end: 20080304
  2. AVASTIN [Suspect]
     Dates: start: 20080129, end: 20080304

REACTIONS (1)
  - DYSPNOEA [None]
